FAERS Safety Report 7243364-6 (Version None)
Quarter: 2010Q4

REPORT INFORMATION
  Report Type: 
  Country: None (occurrence: None)
  Receive Date: 20101229
  Receipt Date: 20101229
  Transmission Date: 20110411
  Serious: Yes (Other)
  Sender: FDA-Public Use
  Company Number: None

PATIENT
  Age: 22 Year
  Sex: Male

DRUGS (1)
  1. BACTRIM DS [Suspect]
     Indication: UPPER RESPIRATORY TRACT INFECTION
     Dosage: 1 PO ONE DOSE
     Route: 048
     Dates: start: 20101215, end: 20101215

REACTIONS (1)
  - ERYTHEMA [None]
